FAERS Safety Report 12191336 (Version 2)
Quarter: 2016Q2

REPORT INFORMATION
  Report Type: Report from Study
  Country: US (occurrence: US)
  Receive Date: 20160318
  Receipt Date: 20160517
  Transmission Date: 20160815
  Serious: Yes (Other)
  Sender: FDA-Public Use
  Company Number: US-AEGERION PHARMACEUTICALS-AEGR002472

PATIENT
  Age: 69 Year
  Sex: Male

DRUGS (37)
  1. RANEXA [Concomitant]
     Active Substance: RANOLAZINE
     Dosage: 500 MG, BID
     Route: 048
     Dates: start: 20151101
  2. VITAMIN E [Concomitant]
     Active Substance: .ALPHA.-TOCOPHEROL
     Indication: SUPPLEMENTATION THERAPY
     Dosage: 1 TABLET, QD
     Route: 048
     Dates: start: 20150119
  3. MINOXIDIL. [Concomitant]
     Active Substance: MINOXIDIL
     Indication: HYPERTENSION
     Dosage: 5 MG, BID
     Route: 048
     Dates: start: 20140712
  4. FUROSEMIDE. [Concomitant]
     Active Substance: FUROSEMIDE
     Indication: CARDIAC FAILURE CONGESTIVE
     Dosage: 40 MG, QD
     Route: 048
     Dates: start: 20151109
  5. AMIODARONE [Concomitant]
     Active Substance: AMIODARONE
     Indication: ATRIAL FIBRILLATION
     Dosage: 250 ML, CONTINUOUS
     Route: 042
     Dates: start: 20151105, end: 20151106
  6. ASPIRIN. [Concomitant]
     Active Substance: ASPIRIN
     Indication: CORONARY ARTERY DISEASE
     Dosage: 81 MG, QD
     Route: 048
     Dates: start: 20120209
  7. NOVOLOG [Concomitant]
     Active Substance: INSULIN ASPART
     Indication: DIABETES MELLITUS
     Dosage: 16 UNITS, QD
     Route: 058
     Dates: start: 20150119
  8. GLIMEPIRIDE. [Concomitant]
     Active Substance: GLIMEPIRIDE
     Indication: DIABETES MELLITUS
     Dosage: 4 MG, BID
     Route: 048
     Dates: start: 20140716
  9. SUCRALFATE. [Concomitant]
     Active Substance: SUCRALFATE
     Indication: GASTROOESOPHAGEAL REFLUX DISEASE
     Dosage: 1 G, QD
     Route: 048
     Dates: start: 20150119
  10. PHENYTOIN SODIUM. [Concomitant]
     Active Substance: PHENYTOIN SODIUM
     Indication: SEIZURE
     Dosage: 300 MG, QHS
     Route: 048
     Dates: start: 20140411
  11. MINOXIDIL. [Concomitant]
     Active Substance: MINOXIDIL
     Dosage: 5 MG, QPM
     Route: 048
     Dates: start: 20151101
  12. NITROGLYCERIN. [Concomitant]
     Active Substance: NITROGLYCERIN
     Indication: CORONARY ARTERY DISEASE
     Dosage: 0.4 MG, PRN
     Route: 060
     Dates: start: 20080331
  13. FUROSEMIDE. [Concomitant]
     Active Substance: FUROSEMIDE
     Dosage: 20 MG, ONCE
     Route: 042
     Dates: start: 20151108, end: 20151108
  14. RANEXA [Concomitant]
     Active Substance: RANOLAZINE
     Indication: CORONARY ARTERY DISEASE
     Dosage: 1000 MG, BID
     Route: 048
     Dates: start: 20120209, end: 20150901
  15. DOXAZOSIN [Concomitant]
     Active Substance: DOXAZOSIN\DOXAZOSIN MESYLATE
     Dosage: 4 MG, QD
     Route: 048
     Dates: start: 20140411, end: 20150218
  16. CARVEDILOL. [Concomitant]
     Active Substance: CARVEDILOL
     Indication: CORONARY ARTERY DISEASE
     Dosage: 6.25 MG, BID
     Route: 048
     Dates: start: 20140411, end: 20140715
  17. CARVEDILOL. [Concomitant]
     Active Substance: CARVEDILOL
     Dosage: 6.25 MG, BID
     Route: 048
     Dates: start: 20151101, end: 20151105
  18. MINOXIDIL. [Concomitant]
     Active Substance: MINOXIDIL
     Dosage: 10 MG, QAM
     Route: 048
     Dates: start: 20151102
  19. PHENYTOIN SODIUM. [Concomitant]
     Active Substance: PHENYTOIN SODIUM
     Dosage: 50 MG, QD
     Route: 048
     Dates: start: 20140702, end: 20150218
  20. PROCARDIA [Concomitant]
     Active Substance: NIFEDIPINE
     Indication: HYPERTENSION
     Dosage: 30 MG, QD
     Route: 048
     Dates: start: 20140411, end: 20140501
  21. AMIODARONE [Concomitant]
     Active Substance: AMIODARONE
     Dosage: 400 MG, BID
     Route: 048
     Dates: start: 20151106
  22. DIGOXIN. [Concomitant]
     Active Substance: DIGOXIN
     Indication: ATRIAL FIBRILLATION
     Dosage: 0.5 MG, ONCE
     Route: 042
     Dates: start: 20151107, end: 20151107
  23. DIGOXIN. [Concomitant]
     Active Substance: DIGOXIN
     Dosage: 0.5 MG, ONCE
     Route: 042
     Dates: start: 20151108, end: 20151108
  24. JUXTAPID [Suspect]
     Active Substance: LOMITAPIDE MESYLATE
     Indication: BLOOD TRIGLYCERIDES INCREASED
  25. DOXAZOSIN [Concomitant]
     Active Substance: DOXAZOSIN\DOXAZOSIN MESYLATE
     Indication: HYPERTENSION
     Dosage: 2 MG, QD
     Route: 048
     Dates: start: 20151026
  26. JUXTAPID [Suspect]
     Active Substance: LOMITAPIDE MESYLATE
     Indication: TYPE IIA HYPERLIPIDAEMIA
     Dosage: 5 MG, QD
     Route: 048
     Dates: start: 20140405, end: 20151101
  27. IMDUR [Concomitant]
     Active Substance: ISOSORBIDE MONONITRATE
     Indication: CORONARY ARTERY DISEASE
     Dosage: 60 MG, QD
     Route: 048
     Dates: start: 20111030
  28. CARVEDILOL. [Concomitant]
     Active Substance: CARVEDILOL
     Dosage: 25 MG, BID
     Route: 048
     Dates: start: 20151106, end: 20151107
  29. CARVEDILOL. [Concomitant]
     Active Substance: CARVEDILOL
     Dosage: 37.5 MG, BID
     Route: 048
     Dates: start: 20151107
  30. PANTOPRAZOLE [Concomitant]
     Active Substance: PANTOPRAZOLE SODIUM
     Indication: GASTROOESOPHAGEAL REFLUX DISEASE
     Dosage: 40 MG, QD
     Route: 048
     Dates: start: 20151109
  31. PROCARDIA [Concomitant]
     Active Substance: NIFEDIPINE
     Dosage: 60 MG, QD
     Route: 048
     Dates: start: 20150502
  32. DIGOXIN. [Concomitant]
     Active Substance: DIGOXIN
     Dosage: 0.125 MG, MONDAY, WEDNESDAY, FRIDAY
     Route: 048
     Dates: start: 20151109
  33. NEXIUM [Concomitant]
     Active Substance: ESOMEPRAZOLE MAGNESIUM
     Indication: GASTROOESOPHAGEAL REFLUX DISEASE
     Dosage: 40 MG, QD
     Route: 048
     Dates: start: 20150218
  34. VITAMIN D [Concomitant]
     Active Substance: CHOLECALCIFEROL
     Indication: SUPPLEMENTATION THERAPY
     Dosage: 1 TABLET, EVERY WEEK
     Route: 048
     Dates: start: 20150119
  35. PRAVASTATIN [Concomitant]
     Active Substance: PRAVASTATIN\PRAVASTATIN SODIUM
     Indication: DYSLIPIDAEMIA
     Dosage: 20 MG, QD
     Route: 048
     Dates: start: 20150901
  36. TROKENDI XR [Concomitant]
     Active Substance: TOPIRAMATE
     Indication: SEIZURE
     Dosage: 100 MG, QD
     Route: 048
     Dates: start: 20150901
  37. DIGOXIN. [Concomitant]
     Active Substance: DIGOXIN
     Dosage: 0.25 MG, QD
     Route: 048
     Dates: start: 20151108, end: 20151108

REACTIONS (2)
  - Oedema peripheral [Not Recovered/Not Resolved]
  - Bladder cancer [Not Recovered/Not Resolved]

NARRATIVE: CASE EVENT DATE: 20160226
